FAERS Safety Report 4503469-7 (Version None)
Quarter: 2004Q4

REPORT INFORMATION
  Report Type: 
  Country: None (occurrence: None)
  Receive Date: 20041112
  Receipt Date: 20041108
  Transmission Date: 20050328
  Serious: Yes (Hospitalization, Disabling)
  Sender: FDA-Public Use
  Company Number: 2004-04768

PATIENT
  Sex: Female

DRUGS (1)
  1. LOXITANE [Suspect]
     Dates: end: 20030701

REACTIONS (3)
  - DRUG WITHDRAWAL SYNDROME [None]
  - LOSS OF EMPLOYMENT [None]
  - MENTAL DISORDER [None]
